FAERS Safety Report 26065546 (Version 1)
Quarter: 2025Q4

REPORT INFORMATION
  Report Type: Spontaneous
  Country: EU (occurrence: EU)
  Receive Date: 20251119
  Receipt Date: 20251119
  Transmission Date: 20260117
  Serious: Yes (Other)
  Sender: ROCHE
  Company Number: None

PATIENT
  Age: 57 Year
  Sex: Male

DRUGS (2)
  1. RITUXIMAB [Suspect]
     Active Substance: RITUXIMAB
     Indication: Hairy cell leukaemia
     Dosage: UNK
     Route: 065
  2. CLADRIBINE [Suspect]
     Active Substance: CLADRIBINE
     Indication: Hairy cell leukaemia
     Dosage: UNK
     Route: 065

REACTIONS (6)
  - Haemophagocytic lymphohistiocytosis [Recovering/Resolving]
  - Pancytopenia [Recovering/Resolving]
  - Liver injury [Recovering/Resolving]
  - Pyrexia [Recovering/Resolving]
  - Blood triglycerides increased [Recovering/Resolving]
  - Serum ferritin increased [Recovering/Resolving]
